FAERS Safety Report 8586914-X (Version None)
Quarter: 2012Q3

REPORT INFORMATION
  Report Type: 
  Country: None (occurrence: None)
  Receive Date: 20120810
  Receipt Date: 20120808
  Transmission Date: 20120928
  Serious: Yes (Other)
  Sender: FDA-Public Use
  Company Number: CHPA2012US017504

PATIENT
  Age: 64 Year
  Sex: Female

DRUGS (4)
  1. CETIRIZINE HYDROCHLORIDE [Concomitant]
  2. COZAAR [Concomitant]
     Indication: BLOOD PRESSURE
  3. PREVACID 24 HR [Suspect]
     Indication: GASTROOESOPHAGEAL REFLUX DISEASE
     Dosage: 15 MG, QD
     Route: 048
  4. CARDIZEM [Interacting]
     Indication: BLOOD PRESSURE
     Dosage: UNK, UNK
     Route: 065

REACTIONS (5)
  - OFF LABEL USE [None]
  - DRUG INTERACTION [None]
  - HYPERTENSION [None]
  - DISEASE RECURRENCE [None]
  - INCORRECT DRUG ADMINISTRATION DURATION [None]
